FAERS Safety Report 10039230 (Version 1)
Quarter: 2014Q1

REPORT INFORMATION
  Report Type: Spontaneous
  Country: IT (occurrence: IT)
  Receive Date: 20140326
  Receipt Date: 20140326
  Transmission Date: 20141002
  Serious: Yes (Hospitalization)
  Sender: FDA-Public Use
  Company Number: PHHY2014IT034827

PATIENT
  Age: 86 Year
  Sex: Female

DRUGS (4)
  1. DICLOFENAC [Suspect]
     Indication: OSTEOARTHRITIS
     Dosage: 2 U, DAILY
     Route: 048
     Dates: start: 20131218, end: 20131220
  2. CARDIOASPIRIN [Suspect]
     Indication: DEEP VEIN THROMBOSIS
     Dosage: 100 MG, DAILY
     Route: 048
     Dates: start: 20130101, end: 20131220
  3. TAVOR (FLUCONAZOLE) [Concomitant]
     Dosage: 1 U, UNK
     Route: 048
  4. OLPRESS [Concomitant]
     Dosage: UNK UKN, UNK

REACTIONS (6)
  - Faeces discoloured [Unknown]
  - Pallor [Unknown]
  - Hyperhidrosis [Unknown]
  - Syncope [Unknown]
  - Small intestinal haemorrhage [Unknown]
  - Anaemia [Unknown]
